FAERS Safety Report 6146210-7 (Version None)
Quarter: 2009Q2

REPORT INFORMATION
  Report Type: 
  Country: None (occurrence: None)
  Receive Date: 20090407
  Receipt Date: 20090329
  Transmission Date: 20091009
  Serious: Yes (Other)
  Sender: FDA-Public Use
  Company Number: PHEH2009US03207

PATIENT
  Sex: Female
  Weight: 58.05 kg

DRUGS (2)
  1. ZELNORM [Suspect]
     Indication: IRRITABLE BOWEL SYNDROME
     Dosage: UNK
     Dates: start: 20060901, end: 20070301
  2. VALTREX [Concomitant]
     Indication: HERPES SIMPLEX

REACTIONS (19)
  - ABDOMINAL DISTENSION [None]
  - ANGINA PECTORIS [None]
  - ANHEDONIA [None]
  - ANXIETY [None]
  - ASTHENIA [None]
  - BLOOD CHOLESTEROL INCREASED [None]
  - CHEST DISCOMFORT [None]
  - CHEST PAIN [None]
  - DIZZINESS [None]
  - ERYTHEMA [None]
  - FEAR [None]
  - HYPOAESTHESIA [None]
  - HYPOAESTHESIA FACIAL [None]
  - PALPITATIONS [None]
  - PANIC ATTACK [None]
  - PRESYNCOPE [None]
  - SWELLING [None]
  - TACHYCARDIA [None]
  - TUNNEL VISION [None]
